FAERS Safety Report 10197325 (Version 1)
Quarter: 2014Q2

REPORT INFORMATION
  Report Type: Spontaneous
  Country: US (occurrence: None)
  Receive Date: 20140523
  Receipt Date: 20140523
  Transmission Date: 20141212
  Serious: No
  Sender: FDA-Public Use
  Company Number: None

PATIENT
  Age: 60 Year
  Sex: Female
  Weight: 58.06 kg

DRUGS (2)
  1. CICLOPIROX [Suspect]
     Indication: ONYCHOMYCOSIS
     Dates: start: 20140101, end: 20140110
  2. SYNTHROID [Concomitant]

REACTIONS (5)
  - Blister [None]
  - Ingrowing nail [None]
  - Impaired healing [None]
  - Pain in extremity [None]
  - Gait disturbance [None]
